FAERS Safety Report 11777962 (Version 5)
Quarter: 2016Q2

REPORT INFORMATION
  Report Type: Spontaneous
  Country: AR (occurrence: AR)
  Receive Date: 20151125
  Receipt Date: 20160517
  Transmission Date: 20160815
  Serious: Yes (Other)
  Sender: FDA-Public Use
  Company Number: AR-PFIZER INC-2015397756

PATIENT
  Age: 72 Year
  Sex: Male

DRUGS (1)
  1. INLYTA [Suspect]
     Active Substance: AXITINIB
     Indication: RENAL CANCER
     Dosage: 5 MG, DAILY
     Dates: start: 20150905

REACTIONS (13)
  - Hydrocephalus [Unknown]
  - Hypokinesia [Recovering/Resolving]
  - Blood glucose decreased [Recovering/Resolving]
  - Diplegia [Recovering/Resolving]
  - Vision blurred [Not Recovered/Not Resolved]
  - Blindness [Not Recovered/Not Resolved]
  - Dizziness [Recovering/Resolving]
  - Visual impairment [Recovering/Resolving]
  - Headache [Recovering/Resolving]
  - Unresponsive to stimuli [Not Recovered/Not Resolved]
  - Limb discomfort [Unknown]
  - Cerebral disorder [Recovering/Resolving]
  - Intracranial mass [Not Recovered/Not Resolved]

NARRATIVE: CASE EVENT DATE: 201509
